FAERS Safety Report 12970713 (Version 1)
Quarter: 2016Q4

REPORT INFORMATION
  Report Type: Spontaneous
  Country: GB (occurrence: GB)
  Receive Date: 20161123
  Receipt Date: 20161123
  Transmission Date: 20170207
  Serious: Yes (Other)
  Sender: FDA-Public Use
  Company Number: GB-ABBVIE-16P-167-1790098-00

PATIENT
  Age: 73 Year
  Sex: Female

DRUGS (2)
  1. SODIUM VALPROATE [Suspect]
     Active Substance: VALPROATE SODIUM
     Indication: PRODUCT USED FOR UNKNOWN INDICATION
     Route: 042
     Dates: end: 20161020
  2. LEVETIRACETAM. [Suspect]
     Active Substance: LEVETIRACETAM
     Indication: HYPERSOMNIA
     Route: 048
     Dates: start: 20161017, end: 20161020

REACTIONS (3)
  - Liver function test abnormal [Not Recovered/Not Resolved]
  - Hepatitis [Unknown]
  - Jaundice [Unknown]

NARRATIVE: CASE EVENT DATE: 20161020
